FAERS Safety Report 9438973 (Version 1)
Quarter: 2013Q3

REPORT INFORMATION
  Report Type: Spontaneous
  Country: HR (occurrence: HR)
  Receive Date: 20130802
  Receipt Date: 20130802
  Transmission Date: 20140515
  Serious: Yes (Life-Threatening)
  Sender: FDA-Public Use
  Company Number: PHHY2013HR082296

PATIENT
  Age: 58 Year
  Sex: Male
  Weight: 90 kg

DRUGS (7)
  1. BROMERGON [Suspect]
     Indication: PARKINSON^S DISEASE
     Dosage: 3 DF, TID
     Route: 048
     Dates: start: 2012
  2. BROMERGON [Suspect]
     Dosage: 4 DF, PER DAY
     Route: 048
  3. MIRAPEXIN [Suspect]
     Indication: PARKINSON^S DISEASE
     Dosage: 2.1 MG, QD
     Route: 048
     Dates: start: 201303
  4. TEGRETOL [Concomitant]
     Dosage: 200 MG, UNK
     Route: 048
     Dates: start: 2006
  5. CORYOL [Concomitant]
     Dosage: 6.25 MG, UNK
     Route: 048
     Dates: start: 2013
  6. KAMIREN [Concomitant]
     Dosage: 4 MG, UNK
     Route: 048
     Dates: start: 2013
  7. NORVASC [Concomitant]
     Route: 048
     Dates: start: 2010

REACTIONS (9)
  - Muscular weakness [Not Recovered/Not Resolved]
  - Increased appetite [Not Recovered/Not Resolved]
  - Gait disturbance [Not Recovered/Not Resolved]
  - Speech disorder [Not Recovered/Not Resolved]
  - Coordination abnormal [Not Recovered/Not Resolved]
  - Libido increased [Not Recovered/Not Resolved]
  - Somnolence [Not Recovered/Not Resolved]
  - Sudden onset of sleep [Not Recovered/Not Resolved]
  - Oedema peripheral [Not Recovered/Not Resolved]
